FAERS Safety Report 4393276-0 (Version None)
Quarter: 2004Q3

REPORT INFORMATION
  Report Type: 
  Country: None (occurrence: None)
  Receive Date: 20040701
  Receipt Date: 20040615
  Transmission Date: 20050211
  Serious: Yes (Death)
  Sender: FDA-Public Use
  Company Number: GBS040615094

PATIENT
  Age: 33 Year
  Sex: Female

DRUGS (2)
  1. PROZAC [Suspect]
     Dates: start: 20021201
  2. ZOPICLONE [Concomitant]

REACTIONS (14)
  - ABNORMAL BEHAVIOUR [None]
  - AORTIC INJURY [None]
  - COMPLETED SUICIDE [None]
  - DRUG SCREEN POSITIVE [None]
  - HAEMORRHAGE [None]
  - MENINGEAL DISORDER [None]
  - PETECHIAE [None]
  - POLYTRAUMATISM [None]
  - PULMONARY CONGESTION [None]
  - PULMONARY HAEMORRHAGE [None]
  - PULMONARY OEDEMA [None]
  - RIB FRACTURE [None]
  - SKIN INJURY [None]
  - SUBARACHNOID HAEMORRHAGE [None]
